FAERS Safety Report 21993412 (Version 6)
Quarter: 2024Q4

REPORT INFORMATION
  Report Type: Report from Study
  Country: JP (occurrence: JP)
  Receive Date: 20230215
  Receipt Date: 20241028
  Transmission Date: 20250114
  Serious: Yes (Hospitalization, Other)
  Sender: UCB
  Company Number: JP-UCBJ-CD202301713UCBPHAPROD

PATIENT
  Age: 5 Year
  Sex: Male
  Weight: 15 kg

DRUGS (7)
  1. FENFLURAMINE HYDROCHLORIDE [Suspect]
     Active Substance: FENFLURAMINE HYDROCHLORIDE
     Indication: Severe myoclonic epilepsy of infancy
     Dosage: 0.4 MILLIGRAM DAILY
     Route: 048
     Dates: start: 20230124, end: 20230221
  2. FENFLURAMINE HYDROCHLORIDE [Suspect]
     Active Substance: FENFLURAMINE HYDROCHLORIDE
     Dosage: 0.2 MILLIGRAM/KILOGRAM, ONCE DAILY (QD)
     Route: 048
     Dates: start: 20230124, end: 20230227
  3. FENFLURAMINE HYDROCHLORIDE [Suspect]
     Active Substance: FENFLURAMINE HYDROCHLORIDE
     Dosage: 0.2 MILLIGRAM/KILOGRAM, 2X/DAY (BID)
     Route: 048
     Dates: start: 20230725
  4. VALPROATE SODIUM [Concomitant]
     Active Substance: VALPROATE SODIUM
     Indication: Epilepsy
     Dosage: 250 MILLIGRAM DAILY
     Route: 048
  5. MYSTAN [Concomitant]
     Active Substance: CLOBAZAM
     Indication: Epilepsy
     Dosage: 4 MILLIGRAM DAILY
     Route: 048
  6. DIACOMIT [Concomitant]
     Active Substance: STIRIPENTOL
     Indication: Epilepsy
     Dosage: 500 MILLIGRAM DAILY
     Route: 048
  7. LEVOCARNITINE HYDROCHLORIDE [Concomitant]
     Active Substance: LEVOCARNITINE HYDROCHLORIDE
     Indication: Prophylaxis
     Dosage: 3 MILLILITER, ONCE DAILY (QD)
     Route: 048

REACTIONS (7)
  - Diarrhoea [Recovered/Resolved]
  - Hyperammonaemia [Recovered/Resolved]
  - Pyrexia [Unknown]
  - Febrile convulsion [Unknown]
  - Nasopharyngitis [Unknown]
  - Vitamin D deficiency [Not Recovered/Not Resolved]
  - Off label use [Unknown]

NARRATIVE: CASE EVENT DATE: 20230214
